FAERS Safety Report 6386404-9 (Version None)
Quarter: 2009Q4

REPORT INFORMATION
  Report Type: 
  Country: None (occurrence: None)
  Receive Date: 20091002
  Receipt Date: 20090928
  Transmission Date: 20100525
  Serious: Yes (Hospitalization)
  Sender: FDA-Public Use
  Company Number: US-BAYER-200934051GPV

PATIENT
  Age: 59 Year
  Sex: Male

DRUGS (9)
  1. SORAFENIB [Suspect]
     Indication: METASTATIC NEOPLASM
     Dosage: AS USED: 400 MG
     Route: 048
     Dates: start: 20080402, end: 20080416
  2. AMG 386 OR PLACEBO [Suspect]
     Indication: METASTATIC NEOPLASM
     Route: 042
     Dates: start: 20080402, end: 20080416
  3. OXYCODONE [Concomitant]
     Dosage: AS USED: 20 MG
     Route: 048
  4. ACETAMINOPHEN [Concomitant]
     Route: 048
  5. DOCUSATE [Concomitant]
  6. HYDROCODONE [Concomitant]
     Route: 048
  7. HYDROMORPHONE [Concomitant]
  8. IBUPROFEN [Concomitant]
  9. PROCHLORPERAZINE [Concomitant]
     Route: 048

REACTIONS (2)
  - BACTERAEMIA [None]
  - DIVERTICULITIS [None]
